FAERS Safety Report 22635403 (Version 1)
Quarter: 2023Q2

REPORT INFORMATION
  Report Type: Report from Study
  Country: DE (occurrence: DE)
  Receive Date: 20230623
  Receipt Date: 20230623
  Transmission Date: 20230722
  Serious: Yes (Life-Threatening, Hospitalization, Other)
  Sender: FDA-Public Use
  Company Number: DE-UCBSA-2022061731

PATIENT
  Age: 54 Year
  Sex: Male

DRUGS (13)
  1. METHOTREXATE SODIUM [Suspect]
     Active Substance: METHOTREXATE SODIUM
     Dosage: 5 MG, WEEKLY
     Route: 048
     Dates: start: 20160820, end: 20220523
  2. PANTOPRAZOLE [Suspect]
     Active Substance: PANTOPRAZOLE
     Dosage: UNK
  3. AMITRIPTYLINE [Suspect]
     Active Substance: AMITRIPTYLINE
     Dosage: UNK
  4. ETORICOXIB [Suspect]
     Active Substance: ETORICOXIB
     Dosage: 90 MILLIGRAM, 3X/WEEK
     Dates: start: 20220228
  5. FOLIC ACID [Suspect]
     Active Substance: FOLIC ACID
     Dosage: UNK
  6. CHOLECALCIFEROL [Suspect]
     Active Substance: CHOLECALCIFEROL
     Dosage: UNK
  7. IBUPROFEN [Suspect]
     Active Substance: IBUPROFEN
     Dosage: 600 MILLIGRAM, 3X/WEEK
     Dates: start: 20210315, end: 20220227
  8. THIAMINE [Suspect]
     Active Substance: THIAMINE
     Dosage: UNK
  9. CERTOLIZUMAB PEGOL [Suspect]
     Active Substance: CERTOLIZUMAB PEGOL
     Indication: Axial spondyloarthritis
     Dosage: 200 MG
  10. CERTOLIZUMAB PEGOL [Suspect]
     Active Substance: CERTOLIZUMAB PEGOL
     Dosage: 200 MG
     Dates: start: 20171114, end: 20201215
  11. CERTOLIZUMAB PEGOL [Suspect]
     Active Substance: CERTOLIZUMAB PEGOL
     Dosage: 400 MG
     Dates: start: 20171114
  12. CERTOLIZUMAB PEGOL [Suspect]
     Active Substance: CERTOLIZUMAB PEGOL
     Dosage: 200 MG, CYCLIC (EVERY 2 WEEKS)
     Dates: start: 20210104
  13. CANNABIDIOL [Suspect]
     Active Substance: CANNABIDIOL
     Dosage: UNK

REACTIONS (3)
  - Suicide attempt [Recovered/Resolved]
  - Drug abuse [Unknown]
  - Adjustment disorder with disturbance of conduct [Recovered/Resolved]

NARRATIVE: CASE EVENT DATE: 20220415
